FAERS Safety Report 5280220-7 (Version None)
Quarter: 2007Q1

REPORT INFORMATION
  Report Type: 
  Country: None (occurrence: None)
  Receive Date: 20070329
  Receipt Date: 20070323
  Transmission Date: 20070707
  Serious: Yes (Hospitalization)
  Sender: FDA-Public Use
  Company Number: RU-ROCHE-489299

PATIENT
  Sex: Male

DRUGS (1)
  1. XELODA [Suspect]
     Indication: COLORECTAL CANCER
     Route: 048
     Dates: end: 20070315

REACTIONS (2)
  - APNOEA [None]
  - TACHYCARDIA [None]
